FAERS Safety Report 6248623-1 (Version None)
Quarter: 2009Q2

REPORT INFORMATION
  Report Type: 
  Country: None (occurrence: None)
  Receive Date: 20090624
  Receipt Date: 20090330
  Transmission Date: 20091009
  Serious: Yes (Other)
  Sender: FDA-Public Use
  Company Number: US-1169036

PATIENT
  Sex: Male
  Weight: 72.5755 kg

DRUGS (6)
  1. TRIESENCE [Suspect]
     Dosage: (INTRAOCULAR)
     Route: 031
     Dates: start: 20090209, end: 20090209
  2. ATENOLOL [Concomitant]
  3. ASPIRIN [Concomitant]
  4. LISINOPRIL [Concomitant]
  5. HYDROCHLOROTHIAZIDE [Concomitant]
  6. CRESTOR [Concomitant]

REACTIONS (1)
  - VISUAL ACUITY REDUCED [None]
